FAERS Safety Report 4720876-8 (Version None)
Quarter: 2005Q3

REPORT INFORMATION
  Report Type: 
  Country: None (occurrence: None)
  Receive Date: 20050719
  Receipt Date: 20050226
  Transmission Date: 20060218
  Serious: Yes (Life-Threatening, Hospitalization, Other)
  Sender: FDA-Public Use
  Company Number: 2004116452

PATIENT
  Age: 70 Year
  Sex: Female
  Weight: 74.3899 kg

DRUGS (7)
  1. CELEBREX [Suspect]
     Indication: OSTEOARTHRITIS
     Dosage: SEE IMAGE
     Route: 048
     Dates: start: 20000101
  2. CELEBREX [Suspect]
     Indication: OSTEOARTHRITIS
     Dosage: SEE IMAGE
     Route: 048
     Dates: start: 20000101
  3. FEXOFENADINE HYDROCHLORIDE [Concomitant]
  4. ASPIRIN [Concomitant]
  5. QUINAPRIL HCL [Concomitant]
  6. CLOPIDOGREL BISULFATE [Concomitant]
  7. RABEPRAZOLE SODIUM [Concomitant]

REACTIONS (2)
  - ACUTE MYOCARDIAL INFARCTION [None]
  - ARTHRITIS [None]
